FAERS Safety Report 4969270-5 (Version None)
Quarter: 2006Q2

REPORT INFORMATION
  Report Type: 
  Country: None (occurrence: None)
  Receive Date: 20060411
  Receipt Date: 20060331
  Transmission Date: 20061013
  Serious: Yes (Disabling)
  Sender: FDA-Public Use
  Company Number: CH-ROCHE-442702

PATIENT
  Age: 57 Year
  Sex: Female

DRUGS (5)
  1. LARIAM [Suspect]
     Indication: MALARIA
     Route: 048
     Dates: start: 20040615, end: 20040615
  2. LARIAM [Suspect]
     Dosage: TAKEN 6 CAPSULES OF 250 MG IN 3 DAYS (SELF-MEDICATION).
     Route: 048
     Dates: start: 20060115, end: 20060118
  3. LARIAM [Suspect]
     Route: 048
     Dates: start: 19960615, end: 19960615
  4. KLACID [Interacting]
     Dosage: FILM COATED TABLETS.
     Route: 048
     Dates: start: 20060120, end: 20060125
  5. AUGMENTIN '125' [Concomitant]
     Dosage: STRENGHTH REPORTED AS 500 MG/ 125 MG. FILM COATED TABLETS.
     Route: 048
     Dates: start: 20060120, end: 20060125

REACTIONS (7)
  - CONFUSIONAL STATE [None]
  - DRUG INTERACTION [None]
  - DRUG LEVEL DECREASED [None]
  - FATIGUE [None]
  - HEPATIC CYST [None]
  - PARAESTHESIA [None]
  - PARESIS [None]
